FAERS Safety Report 7648631-X (Version None)
Quarter: 2011Q3

REPORT INFORMATION
  Report Type: 
  Country: None (occurrence: None)
  Receive Date: 20110801
  Receipt Date: 20110720
  Transmission Date: 20111222
  Serious: Yes (Other)
  Sender: FDA-Public Use
  Company Number: PHHY2011US66463

PATIENT
  Sex: Male

DRUGS (2)
  1. TRIGLYCERIDES [Concomitant]
  2. AFINITOR [Suspect]
     Indication: CARCINOID SYNDROME
     Dosage: 10 MG, QD
     Route: 048
     Dates: start: 20110501, end: 20110601

REACTIONS (3)
  - CONSTIPATION [None]
  - EMOTIONAL DISORDER [None]
  - CRYING [None]
